FAERS Safety Report 12336726 (Version 1)
Quarter: 2016Q2

REPORT INFORMATION
  Report Type: Report from Study
  Country: US (occurrence: US)
  Receive Date: 20160505
  Receipt Date: 20160505
  Transmission Date: 20160815
  Serious: No
  Sender: FDA-Public Use
  Company Number: US-AMGEN-USASL2016054042

PATIENT
  Age: 67 Year
  Sex: Female

DRUGS (1)
  1. ENBREL [Suspect]
     Active Substance: ETANERCEPT
     Indication: RHEUMATOID ARTHRITIS
     Dosage: 50 MG, QWK
     Route: 065

REACTIONS (9)
  - Device use error [Unknown]
  - Device issue [Unknown]
  - Malaise [Unknown]
  - Injection site haemorrhage [Unknown]
  - Injection site bruising [Not Recovered/Not Resolved]
  - Injection site pain [Unknown]
  - Scratch [Not Recovered/Not Resolved]
  - Incorrect product storage [Unknown]
  - Underdose [Unknown]

NARRATIVE: CASE EVENT DATE: 2008
